FAERS Safety Report 6630245-1 (Version None)
Quarter: 2010Q1

REPORT INFORMATION
  Report Type: 
  Country: None (occurrence: None)
  Receive Date: 20100311
  Receipt Date: 20100303
  Transmission Date: 20100710
  Serious: Yes (Life-Threatening, Other)
  Sender: FDA-Public Use
  Company Number: B0391423A

PATIENT
  Sex: Female
  Weight: 115 kg

DRUGS (4)
  1. AVANDIA [Suspect]
     Indication: DRUG USE FOR UNKNOWN INDICATION
     Dosage: 4MG PER DAY
     Route: 048
     Dates: start: 20050621, end: 20050805
  2. ATACAND [Concomitant]
     Indication: HYPERTENSION
  3. DIAFORMIN [Concomitant]
     Route: 048
     Dates: start: 19931103
  4. DIAMICRON [Concomitant]
     Route: 048
     Dates: start: 19950717

REACTIONS (6)
  - ACUTE PULMONARY OEDEMA [None]
  - CARDIAC FAILURE CONGESTIVE [None]
  - CARDIOVASCULAR DISORDER [None]
  - ELECTROCARDIOGRAM QT PROLONGED [None]
  - HYPERTENSION [None]
  - VENTRICULAR TACHYCARDIA [None]
